FAERS Safety Report 9736727 (Version 1)
Quarter: 2013Q4

REPORT INFORMATION
  Report Type: Spontaneous
  Country: US (occurrence: US)
  Receive Date: 20131206
  Receipt Date: 20131206
  Transmission Date: 20140711
  Serious: No
  Sender: FDA-Public Use
  Company Number: US-009507513-1311USA009611

PATIENT
  Sex: Female

DRUGS (1)
  1. AZASITE [Suspect]
     Indication: EYE DISORDER
     Dosage: 1 GTT, QD
     Route: 047

REACTIONS (3)
  - Medication error [Unknown]
  - Drug prescribing error [Unknown]
  - Product quality issue [Unknown]
